FAERS Safety Report 15534089 (Version 1)
Quarter: 2018Q4

REPORT INFORMATION
  Report Type: Spontaneous
  Country: FR (occurrence: FR)
  Receive Date: 20181019
  Receipt Date: 20181019
  Transmission Date: 20190205
  Serious: Yes (Hospitalization)
  Sender: FDA-Public Use
  Company Number: FR-TEVA-2018-FR-965725

PATIENT
  Age: 33 Year
  Sex: Female

DRUGS (3)
  1. GRANOCYTE [Concomitant]
     Active Substance: LENOGRASTIM
     Route: 042
  2. IFOSFAMIDE. [Suspect]
     Active Substance: IFOSFAMIDE
     Indication: OSTEOSARCOMA METASTATIC
     Dosage: NOT RENSEIGNEE
     Route: 042
     Dates: start: 20180116
  3. ETOPOSIDE. [Suspect]
     Active Substance: ETOPOSIDE
     Indication: OSTEOSARCOMA METASTATIC
     Dosage: NOT RENSEIGNEE
     Route: 042
     Dates: start: 20180116

REACTIONS (1)
  - Febrile bone marrow aplasia [Not Recovered/Not Resolved]

NARRATIVE: CASE EVENT DATE: 20180125
